FAERS Safety Report 17000038 (Version 3)
Quarter: 2020Q1

REPORT INFORMATION
  Report Type: Spontaneous
  Country: JP (occurrence: JP)
  Receive Date: 20191106
  Receipt Date: 20200319
  Transmission Date: 20200409
  Serious: Yes (Death, Other)
  Sender: FDA-Public Use
  Company Number: JP-SHIRE-JP201937309

PATIENT

DRUGS (11)
  1. ZYPREXA [Suspect]
     Active Substance: OLANZAPINE
     Indication: REACTIVE PSYCHOSIS
     Dosage: 20 MILLIGRAM
     Route: 048
     Dates: start: 20100415, end: 20191016
  2. CONCERTA [Concomitant]
     Active Substance: METHYLPHENIDATE HYDROCHLORIDE
     Indication: PRODUCT USED FOR UNKNOWN INDICATION
     Dosage: UNK
  3. TEGRETOL [Suspect]
     Active Substance: CARBAMAZEPINE
     Indication: REACTIVE PSYCHOSIS
     Dosage: 500 MILLIGRAM
     Route: 048
     Dates: start: 20081209, end: 20191016
  4. INTUNIV [Suspect]
     Active Substance: GUANFACINE HYDROCHLORIDE
     Indication: ATTENTION DEFICIT/HYPERACTIVITY DISORDER
     Dosage: 1 MILLIGRAM, 1X/DAY:QD
     Route: 048
     Dates: start: 20190918, end: 20191001
  5. SEROQUEL [Suspect]
     Active Substance: QUETIAPINE FUMARATE
     Indication: REACTIVE PSYCHOSIS
     Dosage: 20 MILLIGRAM
     Route: 048
     Dates: start: 20070223, end: 20191016
  6. FEXOFENADINE HYDROCHLORIDE. [Concomitant]
     Active Substance: FEXOFENADINE HYDROCHLORIDE
     Indication: URTICARIA CHRONIC
     Dosage: UNK
  7. INTUNIV [Suspect]
     Active Substance: GUANFACINE HYDROCHLORIDE
     Dosage: 2 MILLIGRAM, 1X/DAY:QD
     Route: 048
     Dates: start: 20191002, end: 20191008
  8. TRAZODONE [Suspect]
     Active Substance: TRAZODONE HYDROCHLORIDE
     Indication: REACTIVE PSYCHOSIS
     Dosage: 50 MILLIGRAM
     Route: 048
     Dates: start: 20161219, end: 20191016
  9. INTUNIV [Suspect]
     Active Substance: GUANFACINE HYDROCHLORIDE
     Dosage: 3 MILLIGRAM, 1X/DAY:QD
     Route: 048
     Dates: start: 20191009, end: 20191016
  10. UBRETID [Suspect]
     Active Substance: DISTIGMINE BROMIDE
     Indication: REACTIVE PSYCHOSIS
     Dosage: 5 MILLIGRAM
     Route: 048
     Dates: start: 20100316, end: 20191016
  11. DEPAKENE [VALPROATE SODIUM] [Suspect]
     Active Substance: VALPROATE SODIUM
     Indication: REACTIVE PSYCHOSIS
     Dosage: 20 MILLIGRAM
     Route: 048
     Dates: start: 20100415, end: 20191016

REACTIONS (1)
  - Asphyxia [Fatal]

NARRATIVE: CASE EVENT DATE: 20191016
